FAERS Safety Report 5008936-8 (Version None)
Quarter: 2006Q2

REPORT INFORMATION
  Report Type: 
  Country: None (occurrence: None)
  Receive Date: 20060518
  Receipt Date: 20060505
  Transmission Date: 20061013
  Serious: No
  Sender: FDA-Public Use
  Company Number: RS005953-D

PATIENT
  Age: 52 Year
  Sex: Female

DRUGS (3)
  1. RABEPRAZOLE SODIUM [Suspect]
     Indication: BARRETT'S OESOPHAGUS
     Dosage: 10 OR 20 MG, ORAL
     Route: 048
     Dates: start: 20051101
  2. RABEPRAZOLE SODIUM [Suspect]
     Indication: REFLUX OESOPHAGITIS
     Dosage: 10 OR 20 MG, ORAL
     Route: 048
     Dates: start: 20051101
  3. TRIPTANE [Concomitant]

REACTIONS (3)
  - MUSCULOSKELETAL PAIN [None]
  - OSTEOARTHRITIS [None]
  - RHEUMATOID FACTOR INCREASED [None]
